FAERS Safety Report 20278927 (Version 1)
Quarter: 2022Q1

REPORT INFORMATION
  Report Type: Spontaneous
  Country: DK (occurrence: DK)
  Receive Date: 20220103
  Receipt Date: 20220103
  Transmission Date: 20220424
  Serious: Yes (Disabling)
  Sender: FDA-Public Use
  Company Number: None

PATIENT
  Age: 76 Year
  Sex: Female

DRUGS (13)
  1. GENTAMICIN [Suspect]
     Active Substance: GENTAMICIN
     Indication: Peritonitis
     Dosage: 40 MG, QD
     Route: 065
     Dates: start: 20210617, end: 20210623
  2. MABLET [Concomitant]
     Indication: Magnesium deficiency
     Dosage: 260 MG, QD
     Route: 048
     Dates: start: 20180307
  3. SODIUM BICARBONATE [Concomitant]
     Active Substance: SODIUM BICARBONATE
     Indication: Metabolic acidosis
     Dosage: 1000 MG, QD
     Route: 048
     Dates: start: 20210121
  4. ALFACALCIDOL [Concomitant]
     Active Substance: ALFACALCIDOL
     Indication: Calcium metabolism disorder
     Dosage: 1 UG
     Route: 048
     Dates: start: 20201126
  5. ACETAMINOPHEN [Concomitant]
     Active Substance: ACETAMINOPHEN
     Indication: Pain
     Dosage: 1000 MG, PRN (DOSAGE: 1000 MG AS NECESSARY, MAX 4 TIMES DAILY)
     Route: 048
     Dates: start: 20191022
  6. POTASSIUM CHLORIDE [Concomitant]
     Active Substance: POTASSIUM CHLORIDE
     Indication: Mineral supplementation
     Dosage: 2250 MG, QD
     Route: 048
     Dates: start: 20210504
  7. SYMBICORT [Concomitant]
     Active Substance: BUDESONIDE\FORMOTEROL FUMARATE DIHYDRATE
     Indication: Lung disorder
     Dosage: 1 DOSAGE FORM, PRN STRENGHT: 1.5 + 160 MICROGRAM/DOSE DOSE: 1 DOSE AS NECESSARY, MAX TWICE DAILY
     Route: 055
     Dates: start: 20160314
  8. LEVOTHYROXINE [Concomitant]
     Active Substance: LEVOTHYROXINE
     Indication: Hypothyroidism
     Dosage: 400 UG, QW
     Route: 048
     Dates: start: 20140226
  9. ALLOPURINOL [Concomitant]
     Active Substance: ALLOPURINOL
     Indication: Gout
     Dosage: 100 MG, QD
     Route: 048
     Dates: start: 20160620
  10. PLAVIX [Concomitant]
     Active Substance: CLOPIDOGREL BISULFATE
     Indication: Thrombosis prophylaxis
     Dosage: 75 MG, QD
     Route: 048
     Dates: start: 20191023
  11. CETIRIZIN TEVA [Concomitant]
     Indication: Seasonal allergy
     Dosage: 10 MG, QD
     Route: 048
     Dates: start: 20201129
  12. ARANESP [Concomitant]
     Active Substance: DARBEPOETIN ALFA
     Indication: Anaemia
     Dosage: 300 UG, Q4W
     Route: 065
     Dates: start: 20190917
  13. ARANESP [Concomitant]
     Active Substance: DARBEPOETIN ALFA
     Dosage: 150 UG, Q4W
     Route: 065
     Dates: start: 20191125

REACTIONS (8)
  - Muscle spasms [Recovered/Resolved]
  - Dizziness [Not Recovered/Not Resolved]
  - Hypoacusis [Not Recovered/Not Resolved]
  - Ototoxicity [Not Recovered/Not Resolved]
  - Chills [Recovered/Resolved]
  - Blood pressure fluctuation [Not Recovered/Not Resolved]
  - Balance disorder [Not Recovered/Not Resolved]
  - Visual impairment [Unknown]

NARRATIVE: CASE EVENT DATE: 20210617
